FAERS Safety Report 4794621-4 (Version None)
Quarter: 2005Q4

REPORT INFORMATION
  Report Type: 
  Country: None (occurrence: None)
  Receive Date: 20051011
  Receipt Date: 20050713
  Transmission Date: 20060501
  Serious: Yes (Hospitalization)
  Sender: FDA-Public Use
  Company Number: GB-MERCK-0507GBR00132

PATIENT
  Age: 57 Year
  Sex: Male
  Weight: 105 kg

DRUGS (7)
  1. VIOXX [Suspect]
     Indication: ARTHRITIS
     Route: 048
     Dates: start: 20000401, end: 20001101
  2. VIOXX [Suspect]
     Route: 048
     Dates: start: 20001101, end: 20020324
  3. OMEPRAZOLE [Concomitant]
     Route: 065
     Dates: start: 20000511, end: 20030101
  4. OMEPRAZOLE [Concomitant]
     Route: 065
     Dates: start: 20030401
  5. SIMVASTATIN [Concomitant]
     Indication: BLOOD CHOLESTEROL INCREASED
     Route: 065
     Dates: start: 19980911
  6. TRAMADOL HYDROCHLORIDE [Concomitant]
     Indication: PAIN
     Route: 065
     Dates: start: 20001123, end: 20050422
  7. TRAMADOL HYDROCHLORIDE [Concomitant]
     Route: 065
     Dates: start: 20010808, end: 20050422

REACTIONS (2)
  - CEREBRAL INFARCTION [None]
  - CEREBROVASCULAR ACCIDENT [None]
